FAERS Safety Report 21423842 (Version 2)
Quarter: 2022Q4

REPORT INFORMATION
  Report Type: Report from Study
  Country: US (occurrence: US)
  Receive Date: 20221007
  Receipt Date: 20221007
  Transmission Date: 20230113
  Serious: Yes (Hospitalization)
  Sender: FDA-Public Use
  Company Number: US-TAKEDA-2022TUS070888

PATIENT
  Sex: Male

DRUGS (33)
  1. TEDUGLUTIDE [Suspect]
     Active Substance: TEDUGLUTIDE
     Indication: Short-bowel syndrome
     Dosage: 2.8 MILLIGRAM, QD
     Route: 042
     Dates: start: 20220213
  2. TEDUGLUTIDE [Suspect]
     Active Substance: TEDUGLUTIDE
     Indication: Short-bowel syndrome
     Dosage: 2.8 MILLIGRAM, QD
     Route: 042
     Dates: start: 20220213
  3. TEDUGLUTIDE [Suspect]
     Active Substance: TEDUGLUTIDE
     Indication: Short-bowel syndrome
     Dosage: 2.8 MILLIGRAM, QD
     Route: 042
     Dates: start: 20220213
  4. TEDUGLUTIDE [Suspect]
     Active Substance: TEDUGLUTIDE
     Indication: Short-bowel syndrome
     Dosage: 2.8 MILLIGRAM, QD
     Route: 042
     Dates: start: 20220213
  5. ASCORBIC ACID [Concomitant]
     Active Substance: ASCORBIC ACID
     Indication: Hypovitaminosis
     Dosage: 500 MILLIGRAM, QD
     Route: 042
     Dates: start: 20211205
  6. ASCORBIC ACID [Concomitant]
     Active Substance: ASCORBIC ACID
     Indication: Mineral deficiency
  7. ATROPINE [Concomitant]
     Active Substance: ATROPINE
     Indication: Diarrhoea
     Dosage: 2.5 MILLIGRAM, TID
     Route: 042
     Dates: start: 20211205
  8. DIPHENOXYLATE [Concomitant]
     Active Substance: DIPHENOXYLATE
     Indication: Diarrhoea
     Dosage: 5 MILLIGRAM, TID
     Route: 048
     Dates: start: 20211205
  9. BENZOCAINE [Concomitant]
     Active Substance: BENZOCAINE
     Indication: Pain
     Dosage: 28 GRAM, BID
     Route: 061
     Dates: start: 20211205
  10. SODIUM CITRATE [Concomitant]
     Active Substance: SODIUM CITRATE
     Indication: Hypovitaminosis
     Dosage: 15 MILLILITER, TID
     Route: 048
     Dates: start: 20211205
  11. SODIUM CITRATE [Concomitant]
     Active Substance: SODIUM CITRATE
     Indication: Mineral deficiency
  12. DIATRIZOATE SODIUM [Concomitant]
     Active Substance: DIATRIZOATE SODIUM
     Indication: Contrast media reaction
     Dosage: 120 MILLILITER
     Route: 048
     Dates: start: 20211205, end: 20211205
  13. ENOXAPARIN [Concomitant]
     Active Substance: ENOXAPARIN
     Indication: Deep vein thrombosis
     Dosage: 60 MILLIGRAM, QD
     Route: 058
     Dates: start: 20211205, end: 2022
  14. ENOXAPARIN [Concomitant]
     Active Substance: ENOXAPARIN
     Indication: Deep vein thrombosis
     Dosage: 0.5 MILLILITER
     Route: 058
     Dates: start: 2022
  15. GUAR GUM [Concomitant]
     Active Substance: GUAR GUM
     Indication: Hypovitaminosis
     Dosage: 4 GRAM, QID
     Route: 048
     Dates: start: 20211205
  16. GUAR GUM [Concomitant]
     Active Substance: GUAR GUM
     Indication: Mineral deficiency
  17. LANTHANUM CARBONATE [Concomitant]
     Active Substance: LANTHANUM CARBONATE
     Indication: Hypovitaminosis
     Dosage: 1000 MILLIGRAM, BID
     Route: 048
     Dates: start: 20211205
  18. LANTHANUM CARBONATE [Concomitant]
     Active Substance: LANTHANUM CARBONATE
     Indication: Mineral deficiency
  19. FAT EMULSION NOS [Concomitant]
     Active Substance: EGG PHOSPHOLIPIDS\SAFFLOWER OIL\SOYBEAN OIL
     Indication: Hypovitaminosis
     Dosage: 250 MILLILITER
     Route: 042
     Dates: start: 20211205
  20. FAT EMULSION NOS [Concomitant]
     Active Substance: EGG PHOSPHOLIPIDS\SAFFLOWER OIL\SOYBEAN OIL
     Indication: Mineral deficiency
  21. LOPERAMIDE [Concomitant]
     Active Substance: LOPERAMIDE
     Indication: Diarrhoea
     Dosage: 15 MILLILITER, QID
     Route: 048
     Dates: start: 20211205
  22. OXYCODONE [Concomitant]
     Active Substance: OXYCODONE
     Indication: Pain
     Dosage: 5 MILLIGRAM
     Route: 042
     Dates: start: 20211205
  23. PANTOPRAZOLE [Concomitant]
     Active Substance: PANTOPRAZOLE
     Indication: Gastrooesophageal reflux disease
     Dosage: 40 MILLIGRAM, BID
     Route: 042
     Dates: start: 20211205
  24. VALPROIC ACID [Concomitant]
     Active Substance: VALPROIC ACID
     Indication: Seizure
     Dosage: 250 MILLIGRAM, QD
     Route: 042
     Dates: start: 20211205
  25. VANCOMYCIN [Concomitant]
     Active Substance: VANCOMYCIN
     Indication: Sepsis
     Dosage: 1.25 GRAM
     Route: 042
     Dates: start: 20211205
  26. VENLAFAXINE [Concomitant]
     Active Substance: VENLAFAXINE HYDROCHLORIDE
     Indication: Depression
     Dosage: 37.5 MILLIGRAM, QD
     Route: 048
     Dates: start: 20211205
  27. ZINC OXIDE [Concomitant]
     Active Substance: ZINC OXIDE
     Indication: Rash
     Dosage: UNK UNK, QD
     Route: 061
     Dates: start: 20211205
  28. ACETAMINOPHEN [Concomitant]
     Active Substance: ACETAMINOPHEN
     Indication: Medical device site pain
     Dosage: 650 MILLIGRAM
     Route: 042
     Dates: start: 20211205
  29. BENADRYL [Concomitant]
     Active Substance: DIPHENHYDRAMINE HYDROCHLORIDE
     Dosage: 0.5 MILLILITER
     Route: 058
     Dates: start: 20220930, end: 20220930
  30. ZOFRAN [Concomitant]
     Active Substance: ONDANSETRON HYDROCHLORIDE
     Indication: Nausea
     Dosage: 2 MILLILITER
     Route: 042
     Dates: start: 20220930, end: 20220930
  31. FOLIC ACID [Concomitant]
     Active Substance: FOLIC ACID
     Indication: Hypovitaminosis
     Dosage: 1 MILLIGRAM
     Route: 048
     Dates: start: 2022
  32. FOLIC ACID [Concomitant]
     Active Substance: FOLIC ACID
     Indication: Mineral deficiency
  33. METHYLPHENIDATE HYDROCHLORIDE [Concomitant]
     Active Substance: METHYLPHENIDATE HYDROCHLORIDE
     Dosage: 0.5 MILLIGRAM, QD
     Route: 048
     Dates: start: 2022

REACTIONS (1)
  - Hospitalisation [Unknown]
